FAERS Safety Report 5801398-X (Version None)
Quarter: 2008Q3

REPORT INFORMATION
  Report Type: 
  Country: None (occurrence: None)
  Receive Date: 20080703
  Receipt Date: 20080703
  Transmission Date: 20090109
  Serious: Yes (Hospitalization)
  Sender: FDA-Public Use
  Company Number: None

PATIENT
  Sex: Female
  Weight: 53.6 kg

DRUGS (4)
  1. ELOXATIN [Suspect]
     Dosage: 132 MG
     Dates: end: 20071022
  2. FLUOROURACIL [Suspect]
     Dosage: 624 MG
     Dates: end: 20071022
  3. BEVACIZUMAB [Suspect]
     Dosage: 0 MG
     Dates: end: 20070917
  4. LEUCOVORIN CALCIUM [Suspect]
     Dosage: 624 MG
     Dates: end: 20071022

REACTIONS (5)
  - DYSAESTHESIA [None]
  - DYSPHAGIA [None]
  - HYPERTENSION [None]
  - HYPOXIA [None]
  - SPEECH DISORDER [None]
